FAERS Safety Report 10183785 (Version 1)
Quarter: 2014Q2

REPORT INFORMATION
  Report Type: Spontaneous
  Country: US (occurrence: US)
  Receive Date: 20140520
  Receipt Date: 20140520
  Transmission Date: 20141212
  Serious: Yes (Other)
  Sender: FDA-Public Use
  Company Number: US-ACTAVIS-2014-10458

PATIENT
  Age: 62 Year
  Sex: Female

DRUGS (4)
  1. FENTANYL-100 (WATSON LABORATORIES) [Suspect]
     Indication: CANCER PAIN
     Dosage: UNK
     Route: 062
  2. GABAPENTIN (AELLC) [Suspect]
     Indication: CANCER PAIN
     Dosage: UNKNOWN
     Route: 048
  3. HYDROMORPHONE HYDROCHLORIDE (WATSON LABORATORIES) [Suspect]
     Indication: CANCER PAIN
     Dosage: 2 MG, UNK
     Route: 042
  4. ROPIVACAINE [Concomitant]
     Indication: CANCER PAIN
     Dosage: 02% AT 10 ML/HOUR
     Route: 051

REACTIONS (2)
  - Sedation [Unknown]
  - Somnolence [Unknown]
